FAERS Safety Report 7763941-3 (Version None)
Quarter: 2011Q3

REPORT INFORMATION
  Report Type: 
  Country: None (occurrence: None)
  Receive Date: 20110921
  Receipt Date: 20110908
  Transmission Date: 20111222
  Serious: Yes (Hospitalization)
  Sender: FDA-Public Use
  Company Number: US-ELI_LILLY_AND_COMPANY-US201101003075

PATIENT
  Sex: Female

DRUGS (6)
  1. FORTEO [Suspect]
     Dosage: 20 UG, QD
     Dates: end: 20110604
  2. FORTEO [Suspect]
     Indication: OSTEOPOROSIS
     Dosage: 20 UG, QD
     Dates: start: 20100601
  3. FORTEO [Suspect]
     Dosage: 20 UG, QD
  4. REMICADE [Concomitant]
  5. TYLENOL                                 /SCH/ [Concomitant]
     Dosage: UNK, PRN
  6. IMURAN [Concomitant]

REACTIONS (10)
  - COUGH [None]
  - PRODUCTIVE COUGH [None]
  - PAIN IN EXTREMITY [None]
  - DIZZINESS [None]
  - PNEUMONIA [None]
  - LOWER EXTREMITY MASS [None]
  - LUNG DISORDER [None]
  - NASOPHARYNGITIS [None]
  - GAIT DISTURBANCE [None]
  - FATIGUE [None]
